FAERS Safety Report 4685621-3 (Version None)
Quarter: 2005Q2

REPORT INFORMATION
  Report Type: 
  Country: None (occurrence: None)
  Receive Date: 20050608
  Receipt Date: 20050607
  Transmission Date: 20051028
  Serious: Yes (Life-Threatening, Hospitalization)
  Sender: FDA-Public Use
  Company Number: ES-MERCK-0506ESP00010

PATIENT
  Age: 68 Year

DRUGS (6)
  1. FOSAMAX [Suspect]
     Indication: RHEUMATOID ARTHRITIS
     Route: 048
     Dates: start: 20050101, end: 20050101
  2. KETOROLAC [Suspect]
     Indication: RHEUMATOID ARTHRITIS
     Route: 065
     Dates: start: 20050101, end: 20050101
  3. DICLOFENAC [Suspect]
     Indication: RHEUMATOID ARTHRITIS
     Route: 065
     Dates: start: 20050101, end: 20050101
  4. METHYLPREDNISOLONE [Suspect]
     Indication: RHEUMATOID ARTHRITIS
     Route: 065
     Dates: start: 20050101, end: 20050101
  5. CALCIUM CARBONATE AND CHOLECALCIFEROL [Concomitant]
     Indication: RHEUMATOID ARTHRITIS
     Route: 048
  6. HYDROXYCHLOROQUINE SULFATE [Concomitant]
     Indication: RHEUMATOID ARTHRITIS
     Route: 048

REACTIONS (3)
  - DRUG INTERACTION [None]
  - INTESTINAL PERFORATION [None]
  - PERITONITIS [None]
